FAERS Safety Report 9660389 (Version 2)
Quarter: 2013Q4

REPORT INFORMATION
  Report Type: Spontaneous
  Country: US (occurrence: US)
  Receive Date: 20131031
  Receipt Date: 20131031
  Transmission Date: 20140711
  Serious: Yes (Death, Other)
  Sender: FDA-Public Use
  Company Number: US-NAPPMUNDI-USA-2008-0032896

PATIENT
  Age: 47 Year
  Sex: Female

DRUGS (3)
  1. OXYCONTIN TABLETS [Suspect]
     Indication: PAIN
     Dosage: 10 MG, BID
     Route: 048
  2. OXYCONTIN TABLETS [Suspect]
     Indication: BACK PAIN
  3. ALPRAZOLAM [Suspect]
     Indication: PRODUCT USED FOR UNKNOWN INDICATION

REACTIONS (10)
  - Accidental overdose [Fatal]
  - Drug dependence [Unknown]
  - Drug withdrawal syndrome [Unknown]
  - Pain [Unknown]
  - Anhedonia [Unknown]
  - Depression [Unknown]
  - Anxiety [Unknown]
  - Drug tolerance [Unknown]
  - Therapeutic response decreased [Unknown]
  - Drug ineffective [Unknown]
